FAERS Safety Report 6307503-3 (Version None)
Quarter: 2009Q3

REPORT INFORMATION
  Report Type: 
  Country: None (occurrence: None)
  Receive Date: 20090813
  Receipt Date: 20090807
  Transmission Date: 20100115
  Serious: Yes (Life-Threatening, Hospitalization, Other)
  Sender: FDA-Public Use
  Company Number: DE-JNJFOC-20090703550

PATIENT
  Age: 60 Year
  Sex: Female

DRUGS (3)
  1. INVEGA [Suspect]
     Indication: MANIA
     Route: 048
  2. TRUXAL [Interacting]
     Indication: MANIA
     Route: 048
  3. CIATYL [Interacting]
     Indication: MANIA
     Route: 048

REACTIONS (4)
  - CARDIOVASCULAR INSUFFICIENCY [None]
  - DRUG INTERACTION [None]
  - MANIA [None]
  - PANIC REACTION [None]
